FAERS Safety Report 8616711 (Version 2)
Quarter: 2014Q1

REPORT INFORMATION
  Report Type: Spontaneous
  Country: US (occurrence: US)
  Receive Date: 20120615
  Receipt Date: 20140114
  Transmission Date: 20141002
  Serious: Yes (Hospitalization, Disabling)
  Sender: FDA-Public Use
  Company Number: US-ASTRAZENECA-2012SE34428

PATIENT
  Age: 69 Year
  Sex: Female
  Weight: 71.7 kg

DRUGS (8)
  1. NEXIUM [Suspect]
     Indication: OESOPHAGEAL PAIN
     Dosage: TWICE DAILY
     Route: 048
  2. PANTOPRAZOLE [Concomitant]
  3. AMLODIPINE-BENAZEPRIL [Concomitant]
     Dosage: 10-20 MG
  4. AMITICA [Concomitant]
  5. GLIMEPIRIDE [Concomitant]
  6. FAMOTIDINE [Concomitant]
  7. LOVAZA [Concomitant]
  8. ALEVE [Concomitant]

REACTIONS (12)
  - Osteoporotic fracture [Unknown]
  - Rotator cuff syndrome [Unknown]
  - Spinal fracture [Unknown]
  - Hernia [Unknown]
  - Multiple fractures [Unknown]
  - Gastric disorder [Unknown]
  - Arthritis [Unknown]
  - Rheumatoid arthritis [Unknown]
  - Abdominal pain upper [Unknown]
  - Headache [Unknown]
  - Dizziness [Unknown]
  - Nausea [Unknown]
